FAERS Safety Report 5803098-9 (Version None)
Quarter: 2008Q3

REPORT INFORMATION
  Report Type: 
  Country: None (occurrence: None)
  Receive Date: 20080708
  Receipt Date: 20080703
  Transmission Date: 20090109
  Serious: Yes (Hospitalization, Other)
  Sender: FDA-Public Use
  Company Number: AU-ABBOTT-05P-008-0300251-00

PATIENT
  Sex: Male

DRUGS (1)
  1. LUCRIN [Suspect]
     Indication: DRUG USE FOR UNKNOWN INDICATION
     Route: 030
     Dates: start: 20041223, end: 20050609

REACTIONS (4)
  - BENIGN PROSTATIC HYPERPLASIA [None]
  - DEPRESSION [None]
  - POST PROCEDURAL HAEMORRHAGE [None]
  - URINARY RETENTION [None]
